FAERS Safety Report 18198176 (Version 1)
Quarter: 2020Q3

REPORT INFORMATION
  Report Type: Spontaneous
  Country: US (occurrence: US)
  Receive Date: 20200826
  Receipt Date: 20200826
  Transmission Date: 20201103
  Serious: No
  Sender: FDA-Public Use
  Company Number: US-SA-2020SA227034

PATIENT

DRUGS (1)
  1. DUPIXENT [Suspect]
     Active Substance: DUPILUMAB
     Indication: PRODUCT USED FOR UNKNOWN INDICATION
     Dosage: 600 MG, 1X
     Route: 058
     Dates: start: 20200813, end: 20200813

REACTIONS (9)
  - Eye pain [Unknown]
  - Dyspnoea [Unknown]
  - Visual impairment [Unknown]
  - Dizziness [Unknown]
  - Restlessness [Unknown]
  - Anxiety [Unknown]
  - Decreased appetite [Unknown]
  - Headache [Unknown]
  - Disturbance in attention [Unknown]

NARRATIVE: CASE EVENT DATE: 202008
